FAERS Safety Report 15593647 (Version 1)
Quarter: 2018Q4

REPORT INFORMATION
  Report Type: Spontaneous
  Country: US (occurrence: US)
  Receive Date: 20181106
  Receipt Date: 20181106
  Transmission Date: 20190205
  Serious: No
  Sender: FDA-Public Use
  Company Number: US-SHIONOGI, INC-2018001417

PATIENT
  Sex: Female

DRUGS (3)
  1. SYMPROIC [Suspect]
     Active Substance: NALDEMEDINE
     Indication: CONSTIPATION
     Dosage: 1 TABLET PER DAY
     Route: 048
     Dates: start: 20180725, end: 20180727
  2. ALPRAZOLAM. [Concomitant]
     Active Substance: ALPRAZOLAM
     Indication: INSOMNIA
     Dosage: 2-4 YEARS
     Route: 065
  3. TIZANIDINE. [Concomitant]
     Active Substance: TIZANIDINE
     Indication: PRODUCT USED FOR UNKNOWN INDICATION
     Dosage: UNK
     Route: 065

REACTIONS (4)
  - Malaise [Unknown]
  - Diarrhoea [Unknown]
  - Abdominal discomfort [Unknown]
  - Balance disorder [Unknown]

NARRATIVE: CASE EVENT DATE: 201807
